FAERS Safety Report 7954894-3 (Version None)
Quarter: 2011Q4

REPORT INFORMATION
  Report Type: 
  Country: None (occurrence: None)
  Receive Date: 20111202
  Receipt Date: 20111121
  Transmission Date: 20120403
  Serious: Yes (Other)
  Sender: FDA-Public Use
  Company Number: DE-NOVOPROD-339880

PATIENT

DRUGS (1)
  1. NORDITROPIN [Suspect]
     Indication: GROWTH HORMONE DEFICIENCY
     Dosage: 1.2 MG, UNK
     Route: 058
     Dates: start: 20040601, end: 20111101

REACTIONS (1)
  - TESTICLE ADENOMA [None]
